FAERS Safety Report 16750783 (Version 1)
Quarter: 2019Q3

REPORT INFORMATION
  Report Type: Spontaneous
  Country: JP (occurrence: JP)
  Receive Date: 20190828
  Receipt Date: 20190828
  Transmission Date: 20191005
  Serious: Yes (Hospitalization)
  Sender: FDA-Public Use
  Company Number: JP-EISAI MEDICAL RESEARCH-EC-2019-060975

PATIENT
  Age: 26 Year
  Sex: Male

DRUGS (3)
  1. LUNESTA [Suspect]
     Active Substance: ESZOPICLONE
     Indication: INSOMNIA
     Route: 048
     Dates: start: 2019
  2. FYCOMPA [Suspect]
     Active Substance: PERAMPANEL
     Indication: EPILEPSY
     Route: 048
     Dates: start: 2019
  3. SELENICA-R [Suspect]
     Active Substance: VALPROATE SODIUM
     Indication: EPILEPSY
     Dosage: DOSE UNKNOWN
     Route: 048

REACTIONS (3)
  - Altered state of consciousness [Recovered/Resolved]
  - Aggression [Unknown]
  - Intentional overdose [Unknown]

NARRATIVE: CASE EVENT DATE: 2019
